FAERS Safety Report 16371244 (Version 1)
Quarter: 2019Q2

REPORT INFORMATION
  Report Type: Spontaneous
  Country: GB (occurrence: GB)
  Receive Date: 20190530
  Receipt Date: 20190530
  Transmission Date: 20190711
  Serious: Yes (Disabling)
  Sender: FDA-Public Use
  Company Number: PHHY2019GB122768

PATIENT
  Age: 16 Year
  Sex: Male

DRUGS (5)
  1. SODIUM VALPROATE [Concomitant]
     Active Substance: VALPROATE SODIUM
     Indication: PRODUCT USED FOR UNKNOWN INDICATION
     Dosage: 2 G, QD (200 AND 300 MG TABLETS)
     Route: 048
  2. IBUPROFEN. [Concomitant]
     Active Substance: IBUPROFEN
     Indication: PRODUCT USED FOR UNKNOWN INDICATION
     Dosage: 400 MG, (3 TIMES DAILY 100MG/5ML)
     Route: 048
  3. PARACETAMOL [Concomitant]
     Active Substance: ACETAMINOPHEN
     Indication: PRODUCT USED FOR UNKNOWN INDICATION
     Dosage: 1 G, UNK (FOUR TIMESS DAILY 250MG/ML)
     Route: 048
  4. CEFOTAXIME [Suspect]
     Active Substance: CEFOTAXIME SODIUM
     Indication: LOWER RESPIRATORY TRACT INFECTION
     Dosage: 6 G, QD (8 HOURLY FOR 2 DAYS. HAD ALREADY BEEN DISCONTINUED AT THE DIAGNOSIS STAGE)
     Route: 041
     Dates: start: 20190425, end: 20190426
  5. CEFTRIAXONE. [Suspect]
     Active Substance: CEFTRIAXONE
     Indication: LOWER RESPIRATORY TRACT INFECTION
     Dosage: 2 G, QD
     Route: 041
     Dates: start: 20190427, end: 20190430

REACTIONS (1)
  - Pancytopenia [Not Recovered/Not Resolved]
